FAERS Safety Report 17820783 (Version 1)
Quarter: 2020Q2

REPORT INFORMATION
  Report Type: Spontaneous
  Country: FR (occurrence: FR)
  Receive Date: 20200525
  Receipt Date: 20200525
  Transmission Date: 20200714
  Serious: Yes (Hospitalization, Other)
  Sender: FDA-Public Use
  Company Number: FR-PFIZER INC-2020202185

PATIENT
  Age: 16 Year
  Sex: Female
  Weight: 70 kg

DRUGS (5)
  1. LUMIRELAX [METHOCARBAMOL] [Suspect]
     Active Substance: METHOCARBAMOL
     Indication: SUICIDE ATTEMPT
     Dosage: 10 DF, SINGLE
     Route: 048
     Dates: start: 20200323, end: 20200323
  2. DAFALGAN [Suspect]
     Active Substance: ACETAMINOPHEN
     Indication: SUICIDE ATTEMPT
     Dosage: 8 G, SINGLE
     Route: 048
     Dates: start: 20200323, end: 20200323
  3. LEVOCETIRIZINE HYDROCHLORIDE [Suspect]
     Active Substance: LEVOCETIRIZINE HYDROCHLORIDE
     Indication: SUICIDE ATTEMPT
     Dosage: 140 MG, SINGLE
     Route: 048
     Dates: start: 20200323, end: 20200323
  4. IBUPROFEN. [Suspect]
     Active Substance: IBUPROFEN
     Indication: SUICIDE ATTEMPT
     Dosage: 6000 MG, SINGLE
     Route: 048
     Dates: start: 20200323, end: 20200323
  5. TRAMADOL HCL [Suspect]
     Active Substance: TRAMADOL HYDROCHLORIDE
     Indication: SUICIDE ATTEMPT
     Dosage: UNK
     Route: 048
     Dates: start: 20200323, end: 20200323

REACTIONS (4)
  - Intentional overdose [Unknown]
  - Bradycardia [Recovered/Resolved]
  - Analgesic drug level increased [Recovered/Resolved]
  - Suicide attempt [Unknown]

NARRATIVE: CASE EVENT DATE: 20200323
